FAERS Safety Report 7487996-9 (Version None)
Quarter: 2011Q2

REPORT INFORMATION
  Report Type: 
  Country: None (occurrence: None)
  Receive Date: 20110518
  Receipt Date: 20110516
  Transmission Date: 20111010
  Serious: No
  Sender: FDA-Public Use
  Company Number: US-PFIZER INC-2011074764

PATIENT
  Sex: Male
  Weight: 77.098 kg

DRUGS (4)
  1. ALLOPURINOL [Concomitant]
     Dosage: UNK
  2. CELEBREX [Suspect]
     Dosage: 200 MG, 2X/DAY
     Route: 048
  3. CELEBREX [Suspect]
     Indication: OSTEOARTHRITIS
     Dosage: 100 MG, 2X/DAY
     Route: 048
  4. ZOCOR [Concomitant]
     Dosage: UNK

REACTIONS (1)
  - BACK DISORDER [None]
